FAERS Safety Report 13021435 (Version 1)
Quarter: 2016Q4

REPORT INFORMATION
  Report Type: Spontaneous
  Country: US (occurrence: US)
  Receive Date: 20161213
  Receipt Date: 20161213
  Transmission Date: 20170207
  Serious: No
  Sender: FDA-Public Use
  Company Number: US-009507513-1611USA014274

PATIENT
  Age: 95 Year

DRUGS (2)
  1. BELSOMRA [Suspect]
     Active Substance: SUVOREXANT
     Indication: HALLUCINATION, VISUAL
  2. BELSOMRA [Suspect]
     Active Substance: SUVOREXANT
     Indication: BLINDNESS
     Dosage: 10 MG, QD
     Route: 048

REACTIONS (2)
  - No adverse event [Unknown]
  - Product use issue [Unknown]
